FAERS Safety Report 10047788 (Version 2)
Quarter: 2014Q2

REPORT INFORMATION
  Report Type: Spontaneous
  Country: IT (occurrence: IT)
  Receive Date: 20140331
  Receipt Date: 20140411
  Transmission Date: 20141212
  Serious: Yes (Hospitalization)
  Sender: FDA-Public Use
  Company Number: IT-SA-2014SA034280

PATIENT
  Age: 73 Year
  Sex: Male

DRUGS (8)
  1. ARAVA [Suspect]
     Indication: RHEUMATOID ARTHRITIS
     Route: 048
     Dates: start: 20070202, end: 20140314
  2. HUMIRA [Suspect]
     Indication: RHEUMATOID ARTHRITIS
     Route: 058
     Dates: start: 20090707, end: 20140314
  3. PREDNISONE [Concomitant]
  4. LANSOPRAZOLE [Concomitant]
  5. OXYBUTYNIN HYDROCHLORIDE [Concomitant]
  6. ALENDRONIC ACID [Concomitant]
  7. CARDIOASPIRIN [Concomitant]
  8. UROREC [Concomitant]

REACTIONS (3)
  - Confusional state [Recovered/Resolved]
  - Pyrexia [Recovered/Resolved]
  - Bronchopneumonia [Recovered/Resolved]
